FAERS Safety Report 7591081-5 (Version None)
Quarter: 2011Q3

REPORT INFORMATION
  Report Type: 
  Country: None (occurrence: None)
  Receive Date: 20110705
  Receipt Date: 20110624
  Transmission Date: 20111222
  Serious: Yes (Hospitalization)
  Sender: FDA-Public Use
  Company Number: PHHY2011US56314

PATIENT
  Age: 79 Year
  Sex: Male

DRUGS (5)
  1. DONEPEZIL HCL [Suspect]
  2. VENLAFAXINE [Suspect]
     Dosage: 75 MG, DAILY
  3. QUETIAPINE [Suspect]
     Indication: AGITATION
     Dosage: 12.5 MG, BID
  4. MIRTAZAPINE [Suspect]
     Indication: INSOMNIA
     Dosage: 30 MG, DAILY
  5. VENLAFAXINE [Suspect]
     Dosage: 225 MG, DAILY

REACTIONS (10)
  - SOCIAL AVOIDANT BEHAVIOUR [None]
  - HYPERREFLEXIA [None]
  - GAIT DISTURBANCE [None]
  - HALLUCINATION [None]
  - CONFUSIONAL STATE [None]
  - FLUSHING [None]
  - PSYCHOMOTOR RETARDATION [None]
  - SEROTONIN SYNDROME [None]
  - AGITATION [None]
  - MYOCLONUS [None]
